FAERS Safety Report 21754702 (Version 1)
Quarter: 2022Q4

REPORT INFORMATION
  Report Type: Spontaneous
  Country: US (occurrence: US)
  Receive Date: 20221220
  Receipt Date: 20221220
  Transmission Date: 20230113
  Serious: No
  Sender: FDA-Public Use
  Company Number: US-PFIZER INC-202201380456

PATIENT
  Age: 71 Year
  Sex: Female
  Weight: 115.21 kg

DRUGS (1)
  1. IBRANCE [Suspect]
     Active Substance: PALBOCICLIB
     Indication: Breast cancer metastatic
     Dosage: 125 MG, CYCLIC (125 MG ONCE A DAY FOR THREE WEEKS AND OFF ONE WEEK)
     Route: 048

REACTIONS (1)
  - Nervousness [Unknown]
